FAERS Safety Report 17587264 (Version 1)
Quarter: 2020Q1

REPORT INFORMATION
  Report Type: Spontaneous
  Country: RU (occurrence: RU)
  Receive Date: 20200326
  Receipt Date: 20200326
  Transmission Date: 20200409
  Serious: Yes (Life-Threatening)
  Sender: FDA-Public Use
  Company Number: RU-JNJFOC-20200319761

PATIENT
  Age: 90 Year
  Sex: Female

DRUGS (1)
  1. RIVAROXABAN FILM-COATED TABLET [Suspect]
     Active Substance: RIVAROXABAN
     Dosage: UNK
     Route: 048

REACTIONS (1)
  - Coagulopathy [Recovering/Resolving]
